FAERS Safety Report 6212373-8 (Version None)
Quarter: 2009Q2

REPORT INFORMATION
  Report Type: 
  Country: None (occurrence: None)
  Receive Date: 20090603
  Receipt Date: 20090520
  Transmission Date: 20091009
  Serious: Yes (Hospitalization)
  Sender: FDA-Public Use
  Company Number: FR-RANBAXY-2009RR-24433

PATIENT
  Age: 35 Year
  Sex: Male

DRUGS (7)
  1. ZOLPIDEM TARTRATE [Suspect]
     Route: 013
  2. HEPARIN [Concomitant]
  3. ASPIRIN [Concomitant]
  4. BUFLOMEDIL [Concomitant]
     Indication: VASODILATATION
  5. MORPHINE [Concomitant]
     Indication: PAIN
  6. PARACETAMOL [Concomitant]
     Indication: PAIN
  7. PENTOXIFYLLINE [Concomitant]
     Indication: VASODILATATION

REACTIONS (1)
  - PERIPHERAL ISCHAEMIA [None]
